FAERS Safety Report 14445336 (Version 2)
Quarter: 2018Q1

REPORT INFORMATION
  Report Type: Spontaneous
  Country: FR (occurrence: FR)
  Receive Date: 20180126
  Receipt Date: 20180205
  Transmission Date: 20180509
  Serious: Yes (Other)
  Sender: FDA-Public Use
  Company Number: FR-ASTRAZENECA-2018SE10803

PATIENT
  Age: 86 Year
  Sex: Male

DRUGS (3)
  1. NALOXEGOL [Suspect]
     Active Substance: NALOXEGOL
     Indication: CONSTIPATION
     Route: 048
     Dates: start: 20171121, end: 20171126
  2. NALOXONE [Concomitant]
     Active Substance: NALOXONE
  3. FENTANYL. [Suspect]
     Active Substance: FENTANYL
     Indication: PRODUCT USED FOR UNKNOWN INDICATION
     Route: 065

REACTIONS (1)
  - Faecaloma [Recovered/Resolved]

NARRATIVE: CASE EVENT DATE: 20171124
